FAERS Safety Report 22294476 (Version 1)
Quarter: 2023Q2

REPORT INFORMATION
  Report Type: Spontaneous
  Country: US (occurrence: US)
  Receive Date: 20230508
  Receipt Date: 20230508
  Transmission Date: 20230722
  Serious: No
  Sender: FDA-Public Use
  Company Number: US-ASTELLAS-2023US010472

PATIENT
  Sex: Female

DRUGS (4)
  1. LEXISCAN [Suspect]
     Active Substance: REGADENOSON
     Indication: Product used for unknown indication
     Dosage: 0.4 MG/5ML, UNKNOWN FREQ.
     Route: 065
     Dates: start: 20230329, end: 20230329
  2. LEXISCAN [Suspect]
     Active Substance: REGADENOSON
     Indication: Product used for unknown indication
     Dosage: 0.4 MG/5ML, UNKNOWN FREQ.
     Route: 065
     Dates: start: 20230329, end: 20230329
  3. LEXISCAN [Suspect]
     Active Substance: REGADENOSON
     Indication: Product used for unknown indication
     Dosage: 0.4 MG/5ML, UNKNOWN FREQ.
     Route: 065
     Dates: start: 20230329, end: 20230329
  4. LEXISCAN [Suspect]
     Active Substance: REGADENOSON
     Indication: Product used for unknown indication
     Dosage: 0.4 MG/5ML, UNKNOWN FREQ.
     Route: 065
     Dates: start: 20230329, end: 20230329

REACTIONS (2)
  - Peripheral coldness [Recovered/Resolved]
  - Cyanosis [Recovered/Resolved]

NARRATIVE: CASE EVENT DATE: 20230329
